FAERS Safety Report 18280385 (Version 7)
Quarter: 2022Q1

REPORT INFORMATION
  Report Type: Report from Study
  Country: US (occurrence: None)
  Receive Date: 20200918
  Receipt Date: 20220119
  Transmission Date: 20220423
  Serious: Yes (Hospitalization)
  Sender: FDA-Public Use
  Company Number: US-ROCHE-2678368

PATIENT
  Age: 61 Year
  Sex: Male
  Weight: 76.2 kg

DRUGS (4)
  1. ATEZOLIZUMAB [Suspect]
     Active Substance: ATEZOLIZUMAB
     Indication: Transitional cell carcinoma
     Dosage: DATE OF MOST RECENT DOSE OF ATEZOLIZUMAB ADMINISTERED PRIOR TO ONSET OF AE/SAE: 24/AUG/2020
     Route: 042
     Dates: start: 20200824
  2. ATEZOLIZUMAB [Suspect]
     Active Substance: ATEZOLIZUMAB
     Dosage: DATE OF MOST RECENT DOSE OF ATEZOLIZUMAB ADMINISTERED PRIOR TO ONSET OF AE/SAE: 24/AUG/2020
     Route: 042
     Dates: start: 20200914
  3. BEVACIZUMAB [Suspect]
     Active Substance: BEVACIZUMAB
     Indication: Transitional cell carcinoma
     Dosage: DATE OF MOST RECENT DOSE OF BEVACIZUMAB ADMINISTERED PRIOR TO ONSET OF AE/SAE: 24/AUG/2020
     Route: 042
     Dates: start: 20200824
  4. BEVACIZUMAB [Suspect]
     Active Substance: BEVACIZUMAB
     Dosage: DATE OF MOST RECENT DOSE OF BEVACIZUMAB ADMINISTERED PRIOR TO ONSET OF AE/SAE: 24/AUG/2020
     Route: 042
     Dates: start: 20200914

REACTIONS (3)
  - Pyrexia [Recovered/Resolved with Sequelae]
  - Immune-mediated hepatitis [Recovered/Resolved]
  - Hyperglycaemia [Recovered/Resolved]

NARRATIVE: CASE EVENT DATE: 20200909
